FAERS Safety Report 5245898-2 (Version None)
Quarter: 2007Q1

REPORT INFORMATION
  Report Type: 
  Country: None (occurrence: None)
  Receive Date: 20070216
  Receipt Date: 20070205
  Transmission Date: 20070707
  Serious: Yes (Hospitalization)
  Sender: FDA-Public Use
  Company Number: OMPQ-NO-0612S-1584

PATIENT
  Age: 59 Year
  Sex: Male
  Weight: 61 kg

DRUGS (1)
  1. OMNIPAQUE 140 [Suspect]
     Dosage: SINGLE DOSE, I.A.
     Dates: start: 20061113, end: 20061113

REACTIONS (2)
  - PANCREATITIS ACUTE [None]
  - POST PROCEDURAL COMPLICATION [None]
